FAERS Safety Report 25159721 (Version 1)
Quarter: 2025Q2

REPORT INFORMATION
  Report Type: Spontaneous
  Country: GB (occurrence: GB)
  Receive Date: 20250404
  Receipt Date: 20250404
  Transmission Date: 20250717
  Serious: Yes (Other)
  Sender: RANBAXY
  Company Number: GB-SUN PHARMACEUTICAL INDUSTRIES LTD-2025RR-502048

PATIENT
  Age: 40 Year
  Sex: Female

DRUGS (1)
  1. VENLAFAXINE [Suspect]
     Active Substance: VENLAFAXINE HYDROCHLORIDE
     Indication: Adverse drug reaction
     Route: 065
     Dates: start: 20250319

REACTIONS (7)
  - Paranoia [Not Recovered/Not Resolved]
  - Medication error [Unknown]
  - Hyperhidrosis [Unknown]
  - Feeling cold [Unknown]
  - Abdominal pain upper [Unknown]
  - Feeding disorder [Unknown]
  - Mydriasis [Unknown]

NARRATIVE: CASE EVENT DATE: 20250319
